FAERS Safety Report 7949274-0 (Version None)
Quarter: 2011Q4

REPORT INFORMATION
  Report Type: 
  Country: None (occurrence: None)
  Receive Date: 20111130
  Receipt Date: 20111115
  Transmission Date: 20120403
  Serious: Yes (Other)
  Sender: FDA-Public Use
  Company Number: CA-ROCHE-1013372

PATIENT
  Sex: Female
  Weight: 64.922 kg

DRUGS (13)
  1. NEXIUM [Concomitant]
     Route: 048
  2. GABAPENTIN [Concomitant]
  3. PREDNISONE [Concomitant]
  4. AMITRIPTYLINE HCL [Concomitant]
  5. METOPROLOL TARTRATE [Concomitant]
     Indication: BLOOD PRESSURE
  6. ACTEMRA [Suspect]
     Route: 042
     Dates: start: 20110908, end: 20110908
  7. ACTEMRA [Suspect]
  8. VITAMIN D [Concomitant]
     Route: 048
  9. CALCIUM [Concomitant]
     Route: 048
  10. MULTI-VITAMIN [Concomitant]
  11. ACTEMRA [Suspect]
     Indication: RHEUMATOID ARTHRITIS
     Route: 042
     Dates: start: 20110519, end: 20110908
  12. ACTONEL [Concomitant]
  13. ACETAMINOPHEN [Concomitant]

REACTIONS (2)
  - ULCERATIVE KERATITIS [None]
  - RHEUMATOID ARTHRITIS [None]
